FAERS Safety Report 9415341 (Version 4)
Quarter: 2014Q4

REPORT INFORMATION
  Report Type: Report from Study
  Country: FR (occurrence: FR)
  Receive Date: 20130723
  Receipt Date: 20141110
  Transmission Date: 20150529
  Serious: Yes (Hospitalization)
  Sender: FDA-Public Use
  Company Number: FR-ACTELION-A-CH2013-83979

PATIENT
  Age: 71 Year
  Sex: Male
  Weight: 72 kg

DRUGS (8)
  1. ENDOXAN [Suspect]
     Active Substance: CYCLOPHOSPHAMIDE
     Indication: SYSTEMIC SCLEROSIS
     Dosage: UNK
     Route: 042
     Dates: start: 20130426, end: 20130426
  2. LOXEN [Concomitant]
     Active Substance: NICARDIPINE HYDROCHLORIDE
     Dosage: UNK
     Dates: start: 20130416
  3. TRACLEER [Suspect]
     Active Substance: BOSENTAN\BOSENTAN MONOHYDRATE
     Dosage: 62.5 MG, BID
     Route: 048
     Dates: start: 20130111, end: 20130527
  4. TRACLEER [Suspect]
     Active Substance: BOSENTAN\BOSENTAN MONOHYDRATE
     Dosage: 62.5 MG, BID
     Route: 048
     Dates: start: 20121123, end: 20121217
  5. INEXIUM [Concomitant]
     Active Substance: ESOMEPRAZOLE
     Dosage: UNK
     Dates: start: 20130415
  6. TRACLEER [Suspect]
     Active Substance: BOSENTAN\BOSENTAN MONOHYDRATE
     Indication: SCLERODERMA RENAL CRISIS
     Dosage: 125 MG, BID
     Route: 048
     Dates: start: 20121218, end: 20130110
  7. TRIATEC [Concomitant]
     Active Substance: RAMIPRIL
     Dosage: UNK
     Dates: start: 20121108
  8. TARDYFERON [Concomitant]
     Active Substance: FERROUS SULFATE\FOLIC ACID
     Dosage: UNK
     Dates: start: 20130415

REACTIONS (8)
  - Pyrexia [Recovered/Resolved]
  - Catheter site inflammation [Recovered/Resolved]
  - Aplastic anaemia [Not Recovered/Not Resolved]
  - Packed red blood cell transfusion [Unknown]
  - Dyspnoea exertional [Not Recovered/Not Resolved]
  - Gastrointestinal angiodysplasia [Not Recovered/Not Resolved]
  - Asthenia [Not Recovered/Not Resolved]
  - Haemoglobin decreased [Not Recovered/Not Resolved]

NARRATIVE: CASE EVENT DATE: 20130415
